FAERS Safety Report 24292071 (Version 3)
Quarter: 2025Q2

REPORT INFORMATION
  Report Type: Report from Study
  Country: US (occurrence: US)
  Receive Date: 20240906
  Receipt Date: 20250603
  Transmission Date: 20250717
  Serious: Yes (Hospitalization)
  Sender: EISAI
  Company Number: US-Eisai-EC-2024-171769

PATIENT
  Age: 63 Year
  Sex: Male
  Weight: 133 kg

DRUGS (10)
  1. LENVIMA [Suspect]
     Active Substance: LENVATINIB
     Indication: Renal cell carcinoma
     Dates: start: 20240730, end: 202408
  2. LENVIMA [Suspect]
     Active Substance: LENVATINIB
     Dates: start: 202408, end: 202408
  3. LENVIMA [Suspect]
     Active Substance: LENVATINIB
     Dates: start: 2024, end: 202412
  4. LENVIMA [Suspect]
     Active Substance: LENVATINIB
  5. LOSARTAN POTASSIUM [Concomitant]
     Active Substance: LOSARTAN POTASSIUM
  6. KEYTRUDA [Concomitant]
     Active Substance: PEMBROLIZUMAB
     Indication: Renal cancer
  7. CARVEDILOL [Concomitant]
     Active Substance: CARVEDILOL
  8. FAMOTIDINE [Concomitant]
     Active Substance: FAMOTIDINE
  9. ROSUVASTATIN [Concomitant]
     Active Substance: ROSUVASTATIN
  10. VITAMIN C [Concomitant]
     Active Substance: ASCORBIC ACID

REACTIONS (11)
  - Blood pressure increased [Not Recovered/Not Resolved]
  - Syncope [Recovering/Resolving]
  - Fall [Recovering/Resolving]
  - Headache [Not Recovered/Not Resolved]
  - Pruritus [Unknown]
  - Dry skin [Unknown]
  - Pain [Recovering/Resolving]
  - Dry mouth [Unknown]
  - Asthenia [Recovering/Resolving]
  - Muscle disorder [Recovering/Resolving]
  - Arthropathy [Recovering/Resolving]

NARRATIVE: CASE EVENT DATE: 20240101
